FAERS Safety Report 23621866 (Version 2)
Quarter: 2024Q1

REPORT INFORMATION
  Report Type: Spontaneous
  Country: US (occurrence: None)
  Receive Date: 20240312
  Receipt Date: 20240327
  Transmission Date: 20240410
  Serious: Yes (Death, Other)
  Sender: FDA-Public Use
  Company Number: 2024A059756

PATIENT
  Sex: Female

DRUGS (6)
  1. BEYFORTUS [Suspect]
     Active Substance: NIRSEVIMAB-ALIP
     Indication: Antiviral prophylaxis
     Dosage: 50 MG, QD
     Route: 030
     Dates: start: 20240130, end: 20240130
  2. BEYFORTUS [Suspect]
     Active Substance: NIRSEVIMAB-ALIP
     Indication: Immunisation
     Dosage: 50 MG, QD
     Route: 030
     Dates: start: 20240130, end: 20240130
  3. VAXELIS [Concomitant]
     Active Substance: DIPHTHERIA AND TETANUS TOXOIDS AND ACELLULAR PERTUSSIS ADSORBED, INACTIVATED POLIOVIRUS AND HAEMOPHI
     Indication: Immunisation
     Dosage: UNK
  4. ROTATEQ [Concomitant]
     Active Substance: HUMAN ROTAVIRUS A TYPE G1P7(5) STRAIN WI79 LIVE ANTIGEN\HUMAN ROTAVIRUS A TYPE G2P7(5) STRAIN SC2 LI
     Indication: Immunisation
     Dosage: UNK
  5. PREVNAR [Concomitant]
     Active Substance: PNEUMOCOCCAL 7-VALENT CONJUGATE VACCINE (DIPHTHERIA CRM197 PROTEIN)
     Indication: Immunisation
     Dosage: UNK
  6. VITAMIN D NOS [Concomitant]
     Active Substance: VITAMIN D NOS
     Dosage: 400 DF, QD, 400UNITS/ML EVERY DAY
     Route: 048

REACTIONS (1)
  - Death [Fatal]
